FAERS Safety Report 17517975 (Version 1)
Quarter: 2020Q1

REPORT INFORMATION
  Report Type: Spontaneous
  Country: GB (occurrence: GB)
  Receive Date: 20200309
  Receipt Date: 20200309
  Transmission Date: 20200409
  Serious: Yes (Other)
  Sender: FDA-Public Use
  Company Number: GB-TEVA-2020-GB-1196218

PATIENT
  Age: 69 Year
  Sex: Male
  Weight: 100 kg

DRUGS (23)
  1. FELODIPINE. [Concomitant]
     Active Substance: FELODIPINE
     Dosage: 1 DOSAGE FORMS
     Dates: start: 20190626
  2. AMOXICILLIN. [Concomitant]
     Active Substance: AMOXICILLIN
     Dosage: FOR 2 WEEKS 3 DOSAGE FORMS
     Dates: start: 20170731
  3. CANDESARTAN. [Concomitant]
     Active Substance: CANDESARTAN
     Dosage: 1 DOSAGE FORMS
     Dates: start: 20190612
  4. DOXYCYCLINE. [Suspect]
     Active Substance: DOXYCYCLINE
     Dosage: TWO NOW THEN ONE DAILY. 100 MG
     Route: 065
     Dates: start: 20200218
  5. TRIMBOW [Concomitant]
     Active Substance: BECLOMETHASONE DIPROPIONATE\FORMOTEROL FUMARATE\GLYCOPYRROLATE
     Dosage: PUFFS 4 DOSAGE FORMS
     Dates: start: 20190612
  6. OXYTETRACYCLINE [Concomitant]
     Active Substance: OXYTETRACYCLINE
     Dosage: 2 DOSAGE FORMS
     Dates: start: 20171227
  7. OTOMIZE [Concomitant]
     Active Substance: DEXAMETHASONE\NEOMYCIN SULFATE
     Dosage: USE AS DIRECTED
     Dates: start: 20200106, end: 20200203
  8. ATORVASTATIN [Concomitant]
     Active Substance: ATORVASTATIN
     Dosage: EACH EVENING 1 DOSAGE FORMS
     Dates: start: 20171227
  9. COLECALCIFEROL [Concomitant]
     Active Substance: CHOLECALCIFEROL
     Dosage: EACH MORNING 1 DOSAGE FORMS
     Dates: start: 20180224
  10. MONTELUKAST [Concomitant]
     Active Substance: MONTELUKAST SODIUM
     Dosage: AT NIGHT 1 DOSAGE FORMS
     Dates: start: 20180723
  11. VENTOLIN [Concomitant]
     Active Substance: ALBUTEROL SULFATE
     Dosage: INHALE 2 DOSAGE FORMS
     Route: 055
     Dates: start: 20171227
  12. MOMETASONE [Concomitant]
     Active Substance: MOMETASONE
     Dosage: SPRAYS 2 DOSAGE FORMS
     Dates: start: 20171227
  13. TAMSULOSIN HYDROCHLORIDE. [Concomitant]
     Active Substance: TAMSULOSIN HYDROCHLORIDE
     Dosage: 1 DOSAGE FORMS
     Dates: start: 20190322
  14. DICLOFENAC DIETHYLAMINE [Concomitant]
     Active Substance: DICLOFENAC DIETHYLAMINE
     Dosage: APPLY 3 DOSAGE FORMS
     Dates: start: 20190501
  15. OMEPRAZOLE. [Concomitant]
     Active Substance: OMEPRAZOLE
     Dosage: 1 DOSAGE FORMS
     Dates: start: 20180403
  16. CLARITHROMYCIN. [Concomitant]
     Active Substance: CLARITHROMYCIN
     Dosage: STOP ATORVASTATIN WHILE TAKING 1 DOSAGE FORMS
     Dates: start: 20200219
  17. PARACETAMOL [Concomitant]
     Active Substance: ACETAMINOPHEN
     Dosage: 8 DOSAGE FORMS
     Dates: start: 20190501
  18. LORATADINE. [Concomitant]
     Active Substance: LORATADINE
     Dosage: EACH MORNING 1 DOSAGE FORMS
     Dates: start: 20171227
  19. METFORMIN [Concomitant]
     Active Substance: METFORMIN HYDROCHLORIDE
     Dosage: 4 DOSAGE FORMS
     Dates: start: 20171227
  20. PREDNISOLONE. [Concomitant]
     Active Substance: PREDNISOLONE
     Dosage: IN MORNING, FOR 5 DAYS 6 DOSAGE FORMS
     Dates: start: 20170731
  21. AZITHROMYCIN ANHYDROUS. [Concomitant]
     Active Substance: AZITHROMYCIN ANHYDROUS
     Dosage: MONDAYS, WEDNESDAYS AND ... 3 DOSAGE FORMS
     Dates: start: 20190211
  22. FUROSEMIDE. [Concomitant]
     Active Substance: FUROSEMIDE
     Dosage: EACH MORNING 1 DOSAGE FORMS
     Dates: start: 20171227
  23. CARBOCISTEINE [Concomitant]
     Active Substance: CARBOCYSTEINE
     Dosage: 6 DOSAGE FORMS
     Dates: start: 20171227

REACTIONS (1)
  - Rash pruritic [Recovering/Resolving]

NARRATIVE: CASE EVENT DATE: 20200219
